FAERS Safety Report 13820504 (Version 1)
Quarter: 2017Q3

REPORT INFORMATION
  Report Type: Spontaneous
  Country: US (occurrence: US)
  Receive Date: 20170801
  Receipt Date: 20170801
  Transmission Date: 20171127
  Serious: No
  Sender: FDA-Public Use
  Company Number: US-JNJFOC-20170316099

PATIENT
  Age: 37 Year
  Sex: Female
  Weight: 71.67 kg

DRUGS (3)
  1. ORTHO TRI CYCLEN LO [Suspect]
     Active Substance: ETHINYL ESTRADIOL\NORGESTIMATE
     Indication: CONTRACEPTION
     Dosage: IN THE MORNING
     Route: 048
     Dates: start: 2012, end: 2014
  2. IRON [Concomitant]
     Active Substance: IRON
     Route: 065
  3. ORTHO TRI CYCLEN LO [Suspect]
     Active Substance: ETHINYL ESTRADIOL\NORGESTIMATE
     Indication: CONTRACEPTION
     Dosage: AT NIGHT
     Route: 048
     Dates: start: 2014

REACTIONS (2)
  - Weight fluctuation [Not Recovered/Not Resolved]
  - Metrorrhagia [Not Recovered/Not Resolved]

NARRATIVE: CASE EVENT DATE: 201703
